FAERS Safety Report 7720844-8 (Version None)
Quarter: 2011Q3

REPORT INFORMATION
  Report Type: 
  Country: None (occurrence: None)
  Receive Date: 20110825
  Receipt Date: 20110804
  Transmission Date: 20111222
  Serious: Yes (Hospitalization)
  Sender: FDA-Public Use
  Company Number: 15922107

PATIENT
  Age: 75 Year
  Sex: Male

DRUGS (5)
  1. LEVEMIR [Suspect]
     Indication: TYPE 2 DIABETES MELLITUS
  2. ASPIRIN [Concomitant]
  3. SAXAGLIPTIN [Suspect]
     Indication: TYPE 2 DIABETES MELLITUS
     Dates: start: 20110530
  4. NOVOLOG [Suspect]
     Indication: TYPE 2 DIABETES MELLITUS
  5. PLACEBO [Suspect]
     Indication: TYPE 2 DIABETES MELLITUS
     Dates: start: 20110530

REACTIONS (8)
  - RENAL FAILURE ACUTE [None]
  - HYDRONEPHROSIS [None]
  - PERIPHERAL EMBOLISM [None]
  - DYSSTASIA [None]
  - PERIPHERAL ARTERIAL OCCLUSIVE DISEASE [None]
  - DEHYDRATION [None]
  - MUSCLE SPASMS [None]
  - BENIGN PROSTATIC HYPERPLASIA [None]
